FAERS Safety Report 21748140 (Version 1)
Quarter: 2022Q4

REPORT INFORMATION
  Report Type: Spontaneous
  Country: BE (occurrence: BE)
  Receive Date: 20221219
  Receipt Date: 20221219
  Transmission Date: 20230113
  Serious: Yes (Life-Threatening, Hospitalization, Other)
  Sender: FDA-Public Use
  Company Number: None

PATIENT
  Age: 62 Year
  Sex: Male
  Weight: 60 kg

DRUGS (9)
  1. VARENICLINE TARTRATE [Interacting]
     Active Substance: VARENICLINE TARTRATE
     Indication: Smoking cessation therapy
     Dosage: UNK (0.5 MG + 1 MG FILM-COATED TABLETS)
     Route: 048
     Dates: start: 202006, end: 202105
  2. ASPIRIN [Interacting]
     Active Substance: ASPIRIN
     Dosage: 1 DF, 1X/DAY
  3. VALPROATE SODIUM [Interacting]
     Active Substance: VALPROATE SODIUM
     Indication: Seizure
     Dosage: 1 DF, 2X/DAY 1 IN THE MORNING, 1 IN THE EVENING.
     Route: 048
     Dates: end: 20210526
  4. IRBESARTAN [Suspect]
     Active Substance: IRBESARTAN
     Dosage: 0.5 DF, 1X/DAY IN THE MORNING
  5. SIMVASTATIN [Suspect]
     Active Substance: SIMVASTATIN
     Dosage: 1 DF, 1X/DAY IN THE EVENING
  6. ALENDRONATE EG [Concomitant]
     Dosage: 1 DF, WEEKLY EVERY MONDAY
  7. DURATEARS [PARAFFIN, LIQUID;WHITE SOFT PARAFFIN;WOOL FAT] [Concomitant]
     Dosage: 1 DF, 2X/DAY (AT 8:00 AND 20:00)
  8. STEOVIT FORTE [Concomitant]
     Dosage: 1 DF, 1X/DAY IN THE EVENING
  9. GINKGO [Concomitant]
     Active Substance: GINKGO
     Dosage: 1 DF, 1X/DAY IN THE MORNING
     Dates: end: 202102

REACTIONS (3)
  - Autoimmune pancytopenia [Recovered/Resolved]
  - Vasculitis [Recovered/Resolved]
  - Drug interaction [Recovered/Resolved]

NARRATIVE: CASE EVENT DATE: 20210501
